FAERS Safety Report 8170103-7 (Version None)
Quarter: 2012Q1

REPORT INFORMATION
  Report Type: 
  Country: None (occurrence: None)
  Receive Date: 20120228
  Receipt Date: 20120214
  Transmission Date: 20120608
  Serious: Yes (Other)
  Sender: FDA-Public Use
  Company Number: PHHY2012AR013168

PATIENT
  Sex: Male

DRUGS (1)
  1. EXFORGE [Suspect]
     Indication: HYPERTENSION
     Dosage: 10 MG AMLO AND 160 MG VALS, DAILY

REACTIONS (4)
  - FLUID RETENTION [None]
  - JOINT SWELLING [None]
  - LIMB CRUSHING INJURY [None]
  - HEADACHE [None]
